FAERS Safety Report 9330567 (Version 2)
Quarter: 2013Q3

REPORT INFORMATION
  Report Type: Report from Study
  Country: BR (occurrence: BR)
  Receive Date: 20130605
  Receipt Date: 20130701
  Transmission Date: 20140515
  Serious: Yes (Other)
  Sender: FDA-Public Use
  Company Number: PHHY2013BR056433

PATIENT
  Age: 38 Year
  Sex: Female

DRUGS (3)
  1. FORASEQ [Suspect]
     Indication: ASTHMA
     Dosage: 2 DF, TWICE DAILY
     Route: 065
     Dates: start: 201303
  2. HYDROCHLOROTHIAZIDE [Concomitant]
     Indication: HYPERTENSION
     Dosage: 25 MG, 1 TABLET DAILY
     Route: 048
  3. OMEPRAZOLE [Concomitant]
     Indication: GASTROINTESTINAL DISORDER
     Dosage: 20 MG, 2 TABLET DAILY
     Route: 048

REACTIONS (8)
  - Endometriosis [Recovered/Resolved]
  - Diabetes mellitus [Unknown]
  - Uterine leiomyoma [Unknown]
  - Uterine enlargement [Unknown]
  - Uterine cyst [Unknown]
  - Haemorrhage [Unknown]
  - Suture rupture [Recovered/Resolved]
  - Asthma [Recovered/Resolved]
